FAERS Safety Report 4468486-4 (Version None)
Quarter: 2004Q4

REPORT INFORMATION
  Report Type: 
  Country: None (occurrence: None)
  Receive Date: 20041006
  Receipt Date: 20041004
  Transmission Date: 20050328
  Serious: Yes (Other)
  Sender: FDA-Public Use
  Company Number: 002823

PATIENT
  Age: 65 Year
  Sex: Male

DRUGS (8)
  1. METHOTREXATE [Suspect]
     Dosage: 7.50 MG,  1/WEEK
     Dates: start: 19990801
  2. HUMIRA [Suspect]
     Indication: SPONDYLOARTHROPATHY
     Dosage: 40.00 MG, 1/WEEK, SUBCUTANEOUS
     Route: 058
     Dates: start: 20030301
  3. HUMIRA [Suspect]
     Indication: SYNOVITIS
     Dosage: 40.00 MG, 1/WEEK, SUBCUTANEOUS
     Route: 058
     Dates: start: 20030301
  4. ATENOLOL [Concomitant]
  5. DIGOXIN [Concomitant]
  6. GLIPIZIDE [Concomitant]
  7. GLUCOPHAGE [Concomitant]
  8. PREDNISONE [Concomitant]

REACTIONS (3)
  - PROSTATE CANCER [None]
  - SPONDYLOARTHROPATHY [None]
  - SYNOVITIS [None]
